FAERS Safety Report 10381445 (Version 1)
Quarter: 2014Q1

REPORT INFORMATION
  Report Type: Spontaneous
  Country: US (occurrence: None)
  Receive Date: 20140306
  Receipt Date: 20140306
  Transmission Date: 20141002
  Serious: No
  Sender: FDA-Public Use
  Company Number: 163-21880-13013956

PATIENT
  Age: 81 Year
  Sex: Female

DRUGS (8)
  1. REVLIMID (LENALIDOMIDE) (10 MILLIGRAM, CAPSULES) [Suspect]
     Indication: PLASMA CELL MYELOMA
     Dosage: TEMPORARILY INTERRUPTED; 21 IN 21 D
     Route: 048
     Dates: start: 20090213
  2. CALCIUM [Concomitant]
  3. CETIRIZINE HCL (CETIRIZINE HYDROCHLORIDE) [Concomitant]
  4. COUMADIN (WARFARIN SODIUM) [Concomitant]
  5. MECLIZINE HCL (MECLOZINE HYDROCHLORIDE) [Concomitant]
  6. MORPHINE SULFATE CR (MORPHINE SULFATE) [Concomitant]
  7. OCCUVITE ADULT FORMULA (OCUVITE ADULT 50+) [Concomitant]
  8. TYLENOL EX ST ARTHRITIS PAIN (PARACETAMOL) [Concomitant]

REACTIONS (3)
  - Thrombosis [None]
  - Headache [None]
  - Abdominal discomfort [None]
